FAERS Safety Report 6852230-7 (Version None)
Quarter: 2010Q3

REPORT INFORMATION
  Report Type: 
  Country: None (occurrence: None)
  Receive Date: 20100717
  Receipt Date: 20071109
  Transmission Date: 20110219
  Serious: No
  Sender: FDA-Public Use
  Company Number: US-PFIZER INC-2007096599

PATIENT
  Sex: Female
  Weight: 48.2 kg

DRUGS (3)
  1. CHANTIX [Suspect]
     Indication: SMOKING CESSATION THERAPY
     Dates: start: 20070901
  2. ADVAIR DISKUS 100/50 [Concomitant]
     Indication: ASTHMA
  3. COMBIVENT [Concomitant]
     Indication: ASTHMA

REACTIONS (3)
  - ABDOMINAL PAIN UPPER [None]
  - ABNORMAL DREAMS [None]
  - NAUSEA [None]
